FAERS Safety Report 17684343 (Version 1)
Quarter: 2020Q2

REPORT INFORMATION
  Report Type: Spontaneous
  Country: US (occurrence: US)
  Receive Date: 20200420
  Receipt Date: 20200420
  Transmission Date: 20200714
  Serious: No
  Sender: FDA-Public Use
  Company Number: US-ASTRAZENECA-2020SE45786

PATIENT
  Sex: Female
  Weight: 86.2 kg

DRUGS (5)
  1. LOTENSIN [Concomitant]
     Active Substance: BENAZEPRIL HYDROCHLORIDE
     Indication: BLOOD PRESSURE MEASUREMENT
     Route: 065
  2. METFORMIN [Concomitant]
     Active Substance: METFORMIN HYDROCHLORIDE
     Indication: TYPE 2 DIABETES MELLITUS
     Route: 065
  3. JARDIANCE [Concomitant]
     Active Substance: EMPAGLIFLOZIN
     Indication: TYPE 2 DIABETES MELLITUS
     Route: 065
  4. BYDUREON BCISE [Suspect]
     Active Substance: EXENATIDE
     Indication: TYPE 2 DIABETES MELLITUS
     Route: 058
  5. SYMVASTATIN [Concomitant]
     Indication: BLOOD CHOLESTEROL
     Route: 065

REACTIONS (5)
  - Wrong technique in device usage process [Unknown]
  - Drug delivery system malfunction [Unknown]
  - Incorrect dose administered [Unknown]
  - Injection site bruising [Recovered/Resolved with Sequelae]
  - Needle issue [Unknown]
